FAERS Safety Report 23971911 (Version 1)
Quarter: 2024Q2

REPORT INFORMATION
  Report Type: Spontaneous
  Country: IT (occurrence: IT)
  Receive Date: 20240613
  Receipt Date: 20240613
  Transmission Date: 20240716
  Serious: Yes (Other)
  Sender: FDA-Public Use
  Company Number: None

PATIENT
  Age: 87 Year
  Sex: Male

DRUGS (1)
  1. DULOXETINE HYDROCHLORIDE [Suspect]
     Active Substance: DULOXETINE HYDROCHLORIDE
     Indication: Product used for unknown indication
     Dosage: 30 MG THE FIRST 5 DAYS AND THEN 30+30MG THE FOLLOWING 5 DAYS, THEN GRADUALLY TAPERED
     Route: 048
     Dates: start: 20240219, end: 20240229

REACTIONS (4)
  - Tachyarrhythmia [Recovered/Resolved]
  - Dizziness [Recovered/Resolved with Sequelae]
  - Extrasystoles [Recovered/Resolved]
  - Blood pressure increased [Recovered/Resolved]

NARRATIVE: CASE EVENT DATE: 20240221
